FAERS Safety Report 19778624 (Version 1)
Quarter: 2021Q3

REPORT INFORMATION
  Report Type: Spontaneous
  Country: US (occurrence: US)
  Receive Date: 20210902
  Receipt Date: 20210902
  Transmission Date: 20211014
  Serious: No
  Sender: FDA-Public Use
  Company Number: None

PATIENT
  Sex: Male

DRUGS (1)
  1. SUTENT [Suspect]
     Active Substance: SUNITINIB MALATE
     Indication: GASTROINTESTINAL STROMAL TUMOUR
     Route: 048
     Dates: start: 20210804

REACTIONS (8)
  - Therapy interrupted [None]
  - Abdominal pain [None]
  - Constipation [None]
  - Intra-abdominal fluid collection [None]
  - Decreased appetite [None]
  - Jaundice [None]
  - Hypersomnia [None]
  - Fatigue [None]
